FAERS Safety Report 9253932 (Version 1)
Quarter: 2013Q2

REPORT INFORMATION
  Report Type: Spontaneous
  Country: JP (occurrence: JP)
  Receive Date: 20130425
  Receipt Date: 20130425
  Transmission Date: 20140414
  Serious: Yes (Other)
  Sender: FDA-Public Use
  Company Number: JP-UCBSA-084131

PATIENT
  Sex: 0

DRUGS (1)
  1. XYZAL [Suspect]
     Route: 048
     Dates: start: 2013

REACTIONS (2)
  - Arrhythmia [Unknown]
  - Blood pressure increased [Unknown]
